FAERS Safety Report 5509453-9 (Version None)
Quarter: 2007Q4

REPORT INFORMATION
  Report Type: 
  Country: None (occurrence: None)
  Receive Date: 20071106
  Receipt Date: 20071022
  Transmission Date: 20080405
  Serious: Yes (Life-Threatening, Hospitalization, Other)
  Sender: FDA-Public Use
  Company Number: 020235

PATIENT
  Age: 28 Year
  Sex: Male

DRUGS (2)
  1. IBUPROFEN [Suspect]
     Indication: INTENTIONAL OVERDOSE
     Dosage: ONCE, ORAL
     Route: 048
  2. PARACETAMOL(ACETAMINOPHEN) TABLET, 500MG [Suspect]
     Indication: INTENTIONAL OVERDOSE
     Dosage: 250 G, ONCE, ORAL
     Route: 048

REACTIONS (22)
  - ACUTE HEPATIC FAILURE [None]
  - AGITATION [None]
  - BLOOD LACTIC ACID INCREASED [None]
  - BLOOD URIC ACID INCREASED [None]
  - COAGULOPATHY [None]
  - DRUG LEVEL INCREASED [None]
  - DRUG TOXICITY [None]
  - DYSPNOEA [None]
  - GASTROINTESTINAL INFLAMMATION [None]
  - GASTROINTESTINAL NECROSIS [None]
  - GASTROINTESTINAL OEDEMA [None]
  - HAEMODIALYSIS [None]
  - HAEMODYNAMIC INSTABILITY [None]
  - HEPATIC NECROSIS [None]
  - HYPOTENSION [None]
  - INTENTIONAL OVERDOSE [None]
  - INTESTINAL HAEMORRHAGE [None]
  - LIVER TRANSPLANT [None]
  - METABOLIC ACIDOSIS [None]
  - MULTIPLE DRUG OVERDOSE INTENTIONAL [None]
  - RENAL FAILURE ACUTE [None]
  - RHABDOMYOLYSIS [None]
